FAERS Safety Report 7658184-8 (Version None)
Quarter: 2011Q3

REPORT INFORMATION
  Report Type: 
  Country: None (occurrence: None)
  Receive Date: 20110805
  Receipt Date: 20110726
  Transmission Date: 20111222
  Serious: Yes (Hospitalization)
  Sender: FDA-Public Use
  Company Number: FR-ELI_LILLY_AND_COMPANY-FR201001006004

PATIENT
  Sex: Male
  Weight: 37 kg

DRUGS (1)
  1. SOMATROPIN RDNA [Suspect]
     Indication: GROWTH HORMONE DEFICIENCY
     Dosage: 1.42 UG, DAILY (1/D)
     Dates: start: 20081201

REACTIONS (1)
  - NEUROBLASTOMA RECURRENT [None]
